FAERS Safety Report 5487056-2 (Version None)
Quarter: 2007Q3

REPORT INFORMATION
  Report Type: 
  Country: None (occurrence: None)
  Receive Date: 20070925
  Receipt Date: 20070628
  Transmission Date: 20080115
  Serious: No
  Sender: FDA-Public Use
  Company Number: 2007US001535

PATIENT
  Age: 68 Year
  Sex: Female

DRUGS (2)
  1. VESICARE [Suspect]
     Dosage: 5 MG, UID/QD, ORAL 10 MG, UID/QD, ORAL
     Route: 048
  2. VESICARE [Suspect]
     Dosage: 5 MG, UID/QD, ORAL 10 MG, UID/QD, ORAL
     Route: 048

REACTIONS (1)
  - INCONTINENCE [None]
